FAERS Safety Report 10289415 (Version 1)
Quarter: 2014Q3

REPORT INFORMATION
  Report Type: Spontaneous
  Country: IT (occurrence: IT)
  Receive Date: 20140710
  Receipt Date: 20140710
  Transmission Date: 20150326
  Serious: Yes (Death, Hospitalization)
  Sender: FDA-Public Use
  Company Number: PHHY2014IT083643

PATIENT
  Age: 70 Year
  Sex: Male

DRUGS (3)
  1. BORTEZOMIB [Suspect]
     Active Substance: BORTEZOMIB
     Indication: CHEMOTHERAPY
  2. PREDNISONE. [Suspect]
     Active Substance: PREDNISONE
     Indication: CHEMOTHERAPY
  3. MELPHALAN [Suspect]
     Active Substance: MELPHALAN
     Indication: CHEMOTHERAPY

REACTIONS (11)
  - Acute myocardial infarction [Fatal]
  - Respiratory distress [Unknown]
  - Renal failure acute [Fatal]
  - Chest pain [Fatal]
  - Hypoxia [Unknown]
  - Hypercapnia [Unknown]
  - Cardiogenic shock [Unknown]
  - Dyspnoea [Fatal]
  - Atrial fibrillation [Unknown]
  - Pleural effusion [Unknown]
  - Mitral valve incompetence [Unknown]
